FAERS Safety Report 9129205 (Version 1)
Quarter: 2013Q1

REPORT INFORMATION
  Report Type: Other
  Country: US (occurrence: US)
  Receive Date: 20130125
  Receipt Date: 20130125
  Transmission Date: 20140127
  Serious: Yes (Death)
  Sender: FDA-Public Use
  Company Number: US-FRI-1000042025

PATIENT
  Age: 41 Year
  Sex: Male

DRUGS (5)
  1. LEVOTHROID [Suspect]
  2. HYDROCODONE/HOMATROPINE [Suspect]
  3. BENZTROPINE [Suspect]
  4. FUROSEMIDE [Suspect]
  5. OLANZAPINE [Suspect]

REACTIONS (1)
  - Completed suicide [Fatal]
